FAERS Safety Report 5309004-8 (Version None)
Quarter: 2007Q2

REPORT INFORMATION
  Report Type: 
  Country: None (occurrence: None)
  Receive Date: 20070420
  Receipt Date: 20070411
  Transmission Date: 20071010
  Serious: Yes (Other)
  Sender: FDA-Public Use
  Company Number: GXKR2007JP02503

PATIENT
  Age: 66 Year
  Sex: Male
  Weight: 56.2 kg

DRUGS (3)
  1. FUROSEMIDE [Suspect]
     Indication: OEDEMA
     Dosage: 40 MG, UNK, UNKNOWN
     Dates: start: 20030201
  2. TORASEMIDE (NGX) (TORASEMIDE) UNKNOWN [Suspect]
     Indication: OEDEMA
     Dosage: 8 MG, UNK, UNKNOWN
  3. LEVOTHYROXINE SODIUM [Concomitant]

REACTIONS (6)
  - GAIT DISTURBANCE [None]
  - HYPOTHYROIDISM [None]
  - OEDEMA [None]
  - PITTING OEDEMA [None]
  - RADIATION INJURY [None]
  - VITAMIN B1 DEFICIENCY [None]
